FAERS Safety Report 16095351 (Version 1)
Quarter: 2019Q1

REPORT INFORMATION
  Report Type: Other
  Country: CA (occurrence: CA)
  Receive Date: 20190320
  Receipt Date: 20190320
  Transmission Date: 20190418
  Serious: Yes (Other)
  Sender: FDA-Public Use
  Company Number: CA-BECTON DICKINSON-2019BDN00108

PATIENT
  Age: 42 Year
  Sex: Female

DRUGS (23)
  1. ZOPICLONE [Concomitant]
     Active Substance: ZOPICLONE
  2. ASCORBIC ACID (VITAMIN C) [Concomitant]
     Active Substance: ASCORBIC ACID
  3. OXYCODONE [Suspect]
     Active Substance: OXYCODONE
  4. OXYCODONE TEREPHTHALATE [Suspect]
     Active Substance: OXYCODONE TEREPHTHALATE
  5. ENBREL [Suspect]
     Active Substance: ETANERCEPT
     Indication: RHEUMATOID ARTHRITIS
  6. VENTOLIN [Concomitant]
     Active Substance: ALBUTEROL SULFATE
  7. PREDNISONE. [Concomitant]
     Active Substance: PREDNISONE
  8. SIMPONI [Suspect]
     Active Substance: GOLIMUMAB
     Route: 058
  9. DESOGESTREL/ETHINYL ESTRADIOL [Concomitant]
     Active Substance: DESOGESTREL\ETHINYL ESTRADIOL
  10. HYDROXYCHLOROQUINE [Concomitant]
     Active Substance: HYDROXYCHLOROQUINE
  11. ERGOCALCIFEROL. [Concomitant]
     Active Substance: ERGOCALCIFEROL
  12. ARAVA [Concomitant]
     Active Substance: LEFLUNOMIDE
  13. ACTEMRA [Suspect]
     Active Substance: TOCILIZUMAB
  14. ACETAMINOPHEN. [Suspect]
     Active Substance: ACETAMINOPHEN
  15. TYLENOL [Concomitant]
     Active Substance: ACETAMINOPHEN
  16. IBUPROFEN. [Concomitant]
     Active Substance: IBUPROFEN
  17. REACTINE [CETIRIZINE HYDROCHLORIDE] [Concomitant]
     Active Substance: CETIRIZINE HYDROCHLORIDE
  18. CIMZIA [Suspect]
     Active Substance: CERTOLIZUMAB PEGOL
     Indication: RHEUMATOID ARTHRITIS
     Dosage: 400 MG CYCLICAL
     Route: 058
  19. PANTOPRAZOLE [Concomitant]
     Active Substance: PANTOPRAZOLE
  20. CHLORHEXIDINE [Suspect]
     Active Substance: CHLORHEXIDINE
  21. LEFLUNOMIDE. [Suspect]
     Active Substance: LEFLUNOMIDE
  22. ORENCIA [Suspect]
     Active Substance: ABATACEPT
  23. METHOTREXATE SODIUM. [Suspect]
     Active Substance: METHOTREXATE SODIUM

REACTIONS (20)
  - Ear pain [Unknown]
  - Headache [Unknown]
  - Respiratory disorder [Unknown]
  - Muscle spasticity [Unknown]
  - Peripheral swelling [Unknown]
  - Pain [Unknown]
  - Vomiting [Unknown]
  - Rash [Unknown]
  - Joint swelling [Unknown]
  - Urticaria [Unknown]
  - Asthenia [Unknown]
  - Back pain [Unknown]
  - Pruritus generalised [Unknown]
  - Abdominal pain upper [Unknown]
  - Night sweats [Unknown]
  - Lower respiratory tract infection [Unknown]
  - Insomnia [Unknown]
  - Sinusitis [Unknown]
  - Diarrhoea [Unknown]
  - Body temperature increased [Unknown]
